FAERS Safety Report 6626980-1 (Version None)
Quarter: 2010Q1

REPORT INFORMATION
  Report Type: 
  Country: None (occurrence: None)
  Receive Date: 20100311
  Receipt Date: 20100303
  Transmission Date: 20100710
  Serious: Yes (Hospitalization)
  Sender: FDA-Public Use
  Company Number: AU-NOVOPROD-305085

PATIENT
  Age: 57 Year
  Sex: Male
  Weight: 175 kg

DRUGS (3)
  1. MIXTARD HUMAN 70/30 [Suspect]
     Indication: TYPE 2 DIABETES MELLITUS
     Dosage: UNK
     Route: 058
     Dates: end: 20100201
  2. DIAMICRON [Concomitant]
     Dates: end: 20100201
  3. METFORMIN HCL [Concomitant]
     Dosage: UNK
     Dates: end: 20100201

REACTIONS (5)
  - DIABETIC KETOACIDOSIS [None]
  - DIARRHOEA [None]
  - MALAISE [None]
  - PANCREATITIS [None]
  - VOMITING [None]
